FAERS Safety Report 10247077 (Version 1)
Quarter: 2014Q2

REPORT INFORMATION
  Report Type: Report from Study
  Country: AU (occurrence: AU)
  Receive Date: 20140619
  Receipt Date: 20140619
  Transmission Date: 20141212
  Serious: Yes (Other)
  Sender: FDA-Public Use
  Company Number: AU-TEVA-489218ISR

PATIENT
  Age: 83 Year
  Sex: Male
  Weight: 81.4 kg

DRUGS (10)
  1. AZILECT [Suspect]
     Indication: PARKINSON^S DISEASE
     Dosage: 1 MILLIGRAM DAILY;
     Route: 048
     Dates: start: 201310, end: 20140401
  2. MDV3100 [Suspect]
     Dosage: 160 MILLIGRAM DAILY;
     Route: 048
     Dates: start: 20140408
  3. MDV3100 [Suspect]
     Dosage: 160 MILLIGRAM DAILY;
     Route: 048
     Dates: start: 20131231, end: 20140325
  4. ACTONEL COMBI [Concomitant]
     Indication: OSTEOPOROSIS
     Route: 048
  5. LEVODOPA/CARBODOPA [Concomitant]
     Indication: PARKINSON^S DISEASE
     Route: 048
  6. LIPIDIL [Concomitant]
     Indication: HYPOCHOLESTEROLAEMIA
     Dosage: 145 MILLIGRAM DAILY;
     Route: 048
     Dates: start: 201212
  7. NEOB12 [Concomitant]
     Indication: VITAMIN B12 DEFICIENCY
     Dates: start: 1997
  8. ASPIRIN [Concomitant]
     Indication: THROMBOSIS PROPHYLAXIS
     Dosage: 100 MILLIGRAM DAILY;
     Route: 048
     Dates: start: 200807
  9. ZOLADEX [Concomitant]
     Indication: PROSTATE CANCER
     Route: 058
     Dates: start: 2003
  10. ACLASTA [Concomitant]
     Indication: OSTEOPOROSIS
     Dates: start: 201206

REACTIONS (1)
  - Toxicity to various agents [Recovered/Resolved]
